FAERS Safety Report 12186729 (Version 1)
Quarter: 2016Q1

REPORT INFORMATION
  Report Type: Spontaneous
  Country: US (occurrence: None)
  Receive Date: 20160316
  Receipt Date: 20160316
  Transmission Date: 20160526
  Serious: No
  Sender: FDA-Public Use
  Company Number: None

PATIENT
  Sex: Female

DRUGS (1)
  1. LISINOPRIL. [Suspect]
     Active Substance: LISINOPRIL

REACTIONS (6)
  - Cough [None]
  - Pneumonia [None]
  - Middle insomnia [None]
  - Nasopharyngitis [None]
  - Feeling cold [None]
  - Productive cough [None]
